FAERS Safety Report 20601344 (Version 1)
Quarter: 2022Q1

REPORT INFORMATION
  Report Type: Spontaneous
  Country: US (occurrence: US)
  Receive Date: 20220316
  Receipt Date: 20220316
  Transmission Date: 20220423
  Serious: Yes (Other)
  Sender: FDA-Public Use
  Company Number: US-TOLMAR, INC.-22US033421

PATIENT
  Age: 37 Year

DRUGS (6)
  1. METRONIDAZOLE [Suspect]
     Active Substance: METRONIDAZOLE
     Indication: Jaw disorder
     Dosage: UNK
  2. METRONIDAZOLE [Suspect]
     Active Substance: METRONIDAZOLE
     Indication: Clostridium difficile infection
     Dosage: UNK
  3. AMOXICILLIN [Suspect]
     Active Substance: AMOXICILLIN
     Indication: Jaw disorder
     Dosage: UNK
  4. AMOXICILLIN [Suspect]
     Active Substance: AMOXICILLIN
     Indication: Tooth disorder
     Dosage: UNK
  5. PENICILLIN [Suspect]
     Active Substance: PENICILLIN
     Indication: Jaw disorder
     Dosage: UNK
  6. CLINDAMYCIN [Suspect]
     Active Substance: CLINDAMYCIN
     Indication: Jaw disorder
     Dosage: UNK

REACTIONS (2)
  - Clostridium difficile infection [Recovered/Resolved]
  - Clostridium difficile infection [Recovered/Resolved]
